FAERS Safety Report 14367575 (Version 5)
Quarter: 2019Q1

REPORT INFORMATION
  Report Type: Spontaneous
  Country: CA (occurrence: CA)
  Receive Date: 20180109
  Receipt Date: 20190307
  Transmission Date: 20190417
  Serious: Yes (Other)
  Sender: FDA-Public Use
  Company Number: CA-CELLTRION INC.-2017CA015618

PATIENT

DRUGS (5)
  1. INFLECTRA [Suspect]
     Active Substance: INFLIXIMAB-DYYB
     Dosage: 5 MG/KG, CYCLIC (EVERY 8 WEEKS)
     Route: 042
     Dates: start: 20171228
  2. PREDNISONE. [Concomitant]
     Active Substance: PREDNISONE
     Dosage: UNK
  3. INFLECTRA [Suspect]
     Active Substance: INFLIXIMAB-DYYB
     Dosage: 700 MG, CYCLIC (EVERY 8 WEEKS)
     Route: 042
  4. INFLECTRA [Suspect]
     Active Substance: INFLIXIMAB-DYYB
     Dosage: 320 MG,CYCLIC EVERY 2, 6 WEEKS,THEN EVERY 8 WEEKS
     Route: 042
     Dates: start: 20171031
  5. INFLECTRA [Suspect]
     Active Substance: INFLIXIMAB-DYYB
     Indication: COLITIS ULCERATIVE
     Dosage: 300 MG, CYCLIC, EVER 2, 6 WEEKS,THEN EVERY 8 WEEKS
     Route: 042
     Dates: start: 20170420

REACTIONS (14)
  - Purulent discharge [Unknown]
  - Nasal dryness [Unknown]
  - Acne [Unknown]
  - Rash generalised [Unknown]
  - Psoriasis [Unknown]
  - Crohn^s disease [Unknown]
  - Wound [Unknown]
  - Dry skin [Unknown]
  - Ear disorder [Unknown]
  - Hepatic enzyme increased [Unknown]
  - Product use issue [Unknown]
  - Erythema [Unknown]
  - Oedema [Unknown]
  - Swelling [Unknown]

NARRATIVE: CASE EVENT DATE: 201707
